FAERS Safety Report 9472630 (Version 4)
Quarter: 2013Q4

REPORT INFORMATION
  Report Type: Spontaneous
  Country: US (occurrence: US)
  Receive Date: 20130823
  Receipt Date: 20131010
  Transmission Date: 20140711
  Serious: Yes (Other)
  Sender: FDA-Public Use
  Company Number: US-ASTELLAS-2013US007970

PATIENT
  Age: 82 Year
  Sex: Male

DRUGS (12)
  1. VESICARE [Suspect]
     Indication: POLLAKIURIA
     Dosage: 5 MG, UID/QD
     Route: 048
     Dates: start: 20130714
  2. VESICARE [Suspect]
     Dosage: 5 MG, UID/QD
     Route: 048
  3. METFORMIN [Concomitant]
     Indication: PRODUCT USED FOR UNKNOWN INDICATION
     Dosage: 500 MG, UID/QD
     Route: 065
  4. METFORMIN [Concomitant]
     Dosage: 500 MG, BID
     Route: 065
  5. INSULIN [Concomitant]
     Indication: PRODUCT USED FOR UNKNOWN INDICATION
     Dosage: 21 U, UID/QD (10 UNIST IN AM AND 11 UNITS IN PM)
     Route: 065
  6. INSULIN [Concomitant]
     Dosage: 41 U, UID/QD (20 UNIST IN AM AND 21 UNITS IN PM)
     Route: 065
  7. LISINOPRIL [Concomitant]
     Indication: PRODUCT USED FOR UNKNOWN INDICATION
     Dosage: UNK
     Route: 065
  8. FUROSEMIDE [Concomitant]
     Indication: PRODUCT USED FOR UNKNOWN INDICATION
     Dosage: UNK
     Route: 065
  9. TAMSULOSIN [Concomitant]
     Indication: PRODUCT USED FOR UNKNOWN INDICATION
     Dosage: UNK
     Route: 065
  10. FENOFIBRATE [Concomitant]
     Indication: PRODUCT USED FOR UNKNOWN INDICATION
     Dosage: UNK
     Route: 065
  11. PANTOPRAZOL [Concomitant]
     Indication: PRODUCT USED FOR UNKNOWN INDICATION
     Dosage: UNK
     Route: 065
  12. CARVEDILOL [Concomitant]
     Indication: PRODUCT USED FOR UNKNOWN INDICATION
     Dosage: UNK
     Route: 065

REACTIONS (3)
  - Drug ineffective [Unknown]
  - Blood glucose increased [Recovered/Resolved]
  - Pollakiuria [Recovered/Resolved]
